FAERS Safety Report 9447569 (Version 1)
Quarter: 2013Q3

REPORT INFORMATION
  Report Type: Report from Study
  Country: US (occurrence: US)
  Receive Date: 20130808
  Receipt Date: 20130808
  Transmission Date: 20140515
  Serious: Yes (Hospitalization)
  Sender: FDA-Public Use
  Company Number: US-JNJFOC-20130707259

PATIENT
  Age: 29 Year
  Sex: Female

DRUGS (3)
  1. DURAGESIC [Suspect]
     Indication: POST LAMINECTOMY SYNDROME
     Route: 062
     Dates: start: 20100617, end: 20121224
  2. DURAGESIC [Suspect]
     Indication: BACK PAIN
     Route: 062
     Dates: start: 20100617, end: 20121224
  3. EFFEXOR [Concomitant]
     Indication: DEPRESSION
     Route: 065
     Dates: start: 20090210, end: 2012

REACTIONS (4)
  - Hallucination [Recovering/Resolving]
  - Delusion [Recovering/Resolving]
  - Abnormal behaviour [Recovering/Resolving]
  - Intentional drug misuse [Recovering/Resolving]
